FAERS Safety Report 5911847-4 (Version None)
Quarter: 2008Q4

REPORT INFORMATION
  Report Type: 
  Country: None (occurrence: None)
  Receive Date: 20081003
  Receipt Date: 20080919
  Transmission Date: 20090506
  Serious: Yes (Hospitalization)
  Sender: FDA-Public Use
  Company Number: 2007-02364

PATIENT
  Age: 70 Year
  Sex: Male
  Weight: 49 kg

DRUGS (2)
  1. VELCADE [Suspect]
     Indication: MULTIPLE MYELOMA
     Dosage: 1.3 MG/M2, INTRAVENOUS; 1 MG/M2, INTRAVENOUS
     Route: 042
     Dates: start: 20070601, end: 20070702
  2. VELCADE [Suspect]
     Indication: MULTIPLE MYELOMA
     Dosage: 1.3 MG/M2, INTRAVENOUS; 1 MG/M2, INTRAVENOUS
     Route: 042
     Dates: start: 20070717

REACTIONS (5)
  - DECREASED APPETITE [None]
  - MALAISE [None]
  - NAUSEA [None]
  - THROMBOCYTOPENIA [None]
  - VOMITING [None]
